FAERS Safety Report 11997698 (Version 1)
Quarter: 2016Q1

REPORT INFORMATION
  Report Type: Spontaneous
  Country: US (occurrence: None)
  Receive Date: 20160202
  Receipt Date: 20160202
  Transmission Date: 20160526
  Serious: Yes (Hospitalization)
  Sender: FDA-Public Use
  Company Number: None

PATIENT
  Age: 92 Year
  Sex: Female
  Weight: 55.9 kg

DRUGS (1)
  1. HYDROCHLOROTHIAZIDE/TRIAMTERENE [Suspect]
     Active Substance: HYDROCHLOROTHIAZIDE\TRIAMTERENE
     Indication: HYPERTENSION
     Route: 048
     Dates: start: 20010713, end: 20150819

REACTIONS (5)
  - Blood glucose increased [None]
  - Heart rate increased [None]
  - Seizure [None]
  - Hyponatraemia [None]
  - Blood pressure systolic increased [None]

NARRATIVE: CASE EVENT DATE: 20150820
